FAERS Safety Report 5945914-6 (Version None)
Quarter: 2008Q4

REPORT INFORMATION
  Report Type: 
  Country: None (occurrence: None)
  Receive Date: 20081105
  Receipt Date: 20081027
  Transmission Date: 20090506
  Serious: Yes (Other)
  Sender: FDA-Public Use
  Company Number: B0544282A

PATIENT
  Age: 55 Year
  Sex: Female

DRUGS (2)
  1. AMOXICILLIN AND CLAVULANATE POTASSIUM [Suspect]
     Indication: PROPHYLAXIS
  2. ETHANOL [Concomitant]

REACTIONS (3)
  - ACUTE CORONARY SYNDROME [None]
  - ARTERIOSPASM CORONARY [None]
  - DRUG HYPERSENSITIVITY [None]
